FAERS Safety Report 9385995 (Version 1)
Quarter: 2013Q3

REPORT INFORMATION
  Report Type: Spontaneous
  Country: US (occurrence: US)
  Receive Date: 20130705
  Receipt Date: 20130705
  Transmission Date: 20140515
  Serious: Yes (Other)
  Sender: FDA-Public Use
  Company Number: US-BAXTER-2013BAX025436

PATIENT
  Age: 12 Year
  Sex: Female

DRUGS (9)
  1. GAMMAGARD LIQUID [Suspect]
     Indication: THROMBOCYTOPENIA
     Dosage: 2G/KG/DOSE
     Route: 042
  2. GAMMAGARD LIQUID [Suspect]
     Indication: HAEMATURIA
  3. GAMMAGARD LIQUID [Suspect]
     Indication: ANAEMIA
  4. ANTI-D IMMUNE GLOBULIN [Suspect]
     Indication: THROMBOCYTOPENIA
     Route: 065
  5. ANTI-D IMMUNE GLOBULIN [Suspect]
     Indication: HAEMATURIA
  6. ANTI-D IMMUNE GLOBULIN [Suspect]
     Indication: ANAEMIA
  7. METHYLPREDNISOLONE [Suspect]
     Indication: THROMBOCYTOPENIA
     Route: 042
  8. METHYLPREDNISOLONE [Suspect]
     Indication: HAEMATURIA
  9. METHYLPREDNISOLONE [Suspect]
     Indication: ANAEMIA

REACTIONS (2)
  - Headache [Not Recovered/Not Resolved]
  - Drug ineffective [Unknown]
